FAERS Safety Report 23643234 (Version 1)
Quarter: 2024Q1

REPORT INFORMATION
  Report Type: Spontaneous
  Country: US (occurrence: None)
  Receive Date: 20240315
  Receipt Date: 20240315
  Transmission Date: 20240409
  Serious: Yes (Disabling)
  Sender: FDA-Public Use
  Company Number: None

PATIENT
  Sex: Female

DRUGS (1)
  1. RISPERIDONE [Suspect]
     Active Substance: RISPERIDONE
     Indication: Product use issue
     Dosage: FREQUENCY : AT BEDTIME;?
     Route: 048
     Dates: end: 20240315

REACTIONS (3)
  - Product complaint [None]
  - Unevaluable event [None]
  - Malaise [None]

NARRATIVE: CASE EVENT DATE: 20230107
